FAERS Safety Report 9113602 (Version 2)
Quarter: 2013Q2

REPORT INFORMATION
  Report Type: Spontaneous
  Country: CA (occurrence: CA)
  Receive Date: 20130208
  Receipt Date: 20130402
  Transmission Date: 20140414
  Serious: Yes (Hospitalization)
  Sender: FDA-Public Use
  Company Number: CA-ELI_LILLY_AND_COMPANY-CA201302001926

PATIENT
  Age: 50 Year
  Sex: Female

DRUGS (14)
  1. OLANZAPINE [Suspect]
     Indication: SCHIZOPHRENIA
     Dosage: 5 MG, QD
     Dates: start: 1997
  2. OLANZAPINE [Suspect]
     Dosage: 10 MG, QD
  3. PROZAC [Suspect]
     Dosage: 20 MG, QD
  4. PROZAC [Suspect]
     Dosage: 60 MG, QD
  5. PROZAC [Suspect]
     Dosage: 40 MG, QD
  6. LOXAPINE [Concomitant]
     Dosage: 100 MG, QD
  7. LOXAPINE [Concomitant]
     Dosage: 25 MG, QD
  8. LOXAPINE [Concomitant]
     Dosage: 100 MG, QD
  9. LOXAPINE [Concomitant]
     Dosage: 25 MG, QD
  10. LOXAPINE [Concomitant]
     Dosage: 100 MG, QD
  11. RISPERIDONE [Concomitant]
     Dosage: 2 MG, UNK
  12. PIPOTIAZINE PALMITATE [Concomitant]
     Dosage: 100 MG, MONTHLY (1/M)
     Route: 030
  13. ABILIFY [Concomitant]
     Dosage: 2 MG, QD
  14. ABILIFY [Concomitant]
     Dosage: 20 MG, QD

REACTIONS (7)
  - Mania [Unknown]
  - Prescribed overdose [Recovered/Resolved]
  - Sedation [Unknown]
  - Disturbance in attention [Unknown]
  - Psychotic disorder [Unknown]
  - Treatment noncompliance [None]
  - Drug administration error [None]
